FAERS Safety Report 6030111-9 (Version None)
Quarter: 2009Q1

REPORT INFORMATION
  Report Type: 
  Country: None (occurrence: None)
  Receive Date: 20090107
  Receipt Date: 20081010
  Transmission Date: 20090719
  Serious: No
  Sender: FDA-Public Use
  Company Number: US-BAYER-200814044BCC

PATIENT
  Age: 74 Year
  Sex: Female
  Weight: 69 kg

DRUGS (26)
  1. ALEVE (CAPLET) [Suspect]
     Indication: PAIN
     Route: 048
     Dates: start: 20081005, end: 20081007
  2. ALEVE (CAPLET) [Suspect]
     Route: 048
     Dates: start: 19930101, end: 20080317
  3. ALEVE [Suspect]
     Indication: PAIN
     Route: 048
     Dates: start: 20071101
  4. PLAVIX [Concomitant]
  5. HALFPIN 325 MG ASPIRIN [Concomitant]
  6. GENERIC 81 MG ASPIRIN [Concomitant]
  7. LASIX [Concomitant]
  8. THYROID TAB [Concomitant]
  9. LORATADINE [Concomitant]
  10. FEOSOL IRON [Concomitant]
  11. ULTRAB COMPLEX [Concomitant]
  12. CO Q10 [Concomitant]
  13. RESVERATROL [Concomitant]
  14. LITHIUM ASPARTATE [Concomitant]
  15. NEPTUNE KRILL OIL [Concomitant]
  16. NIACINATE [Concomitant]
  17. CARDIO EDGE [Concomitant]
  18. ZINC PICOLINATE [Concomitant]
  19. HYAL-JOINT [Concomitant]
  20. D 3-5 [Concomitant]
  21. BASIC NUTRIENTS 3 [Concomitant]
  22. ASCORBIC ACID [Concomitant]
  23. MICRO-K [Concomitant]
  24. CALCIUM COMPLEX BONE FORMULA [Concomitant]
  25. PERFUSIA SR [Concomitant]
  26. MAGNESIUM ASPARTATE [Concomitant]

REACTIONS (3)
  - CONTUSION [None]
  - FEELING COLD [None]
  - PARAESTHESIA [None]
